FAERS Safety Report 7051144-X (Version None)
Quarter: 2010Q4

REPORT INFORMATION
  Report Type: 
  Country: None (occurrence: None)
  Receive Date: 20101019
  Receipt Date: 20101013
  Transmission Date: 20110411
  Serious: Yes (Hospitalization)
  Sender: FDA-Public Use
  Company Number: US-SANOFI-AVENTIS-2010SA062984

PATIENT
  Age: 83 Year
  Sex: Male

DRUGS (1)
  1. UROXATRAL [Suspect]
     Indication: PROSTATIC DISORDER
     Route: 048
     Dates: start: 20100701

REACTIONS (3)
  - ORAL ADMINISTRATION COMPLICATION [None]
  - PERICARDIAL EFFUSION [None]
  - PRODUCT SHAPE ISSUE [None]
